FAERS Safety Report 11348377 (Version 1)
Quarter: 2015Q3

REPORT INFORMATION
  Report Type: Spontaneous
  Country: US (occurrence: US)
  Receive Date: 20150806
  Receipt Date: 20150806
  Transmission Date: 20151125
  Serious: No
  Sender: FDA-Public Use
  Company Number: ALCN2015US004644

PATIENT
  Sex: Female

DRUGS (4)
  1. ICAPS LZ [Suspect]
     Active Substance: VITAMINS
     Dosage: 1 UNK, UNK
     Route: 048
  2. ICAPS MV [Suspect]
     Active Substance: MINERALS\VITAMINS
     Dosage: UNK
  3. ICAPS MV [Suspect]
     Active Substance: MINERALS\VITAMINS
     Indication: PRODUCT USED FOR UNKNOWN INDICATION
     Dosage: 1 DF, BID
     Route: 048
  4. ICAPS LZ [Suspect]
     Active Substance: VITAMINS
     Indication: PRODUCT USED FOR UNKNOWN INDICATION
     Dosage: 1 DF, BID
     Route: 048

REACTIONS (1)
  - Wrong technique in product usage process [Recovered/Resolved]
